FAERS Safety Report 15519654 (Version 4)
Quarter: 2019Q1

REPORT INFORMATION
  Report Type: Report from Study
  Country: CA (occurrence: CA)
  Receive Date: 20181017
  Receipt Date: 20190308
  Transmission Date: 20190417
  Serious: Yes (Hospitalization, Other)
  Sender: FDA-Public Use
  Company Number: CA-OTSUKA-2018_033455

PATIENT
  Sex: Female
  Weight: 57 kg

DRUGS (13)
  1. EZETROL [Concomitant]
     Active Substance: EZETIMIBE
     Indication: HYPERLIPIDAEMIA
     Dosage: 10 MG, QD
     Route: 048
     Dates: start: 201301
  2. BETAMETHASONE VALERATE. [Concomitant]
     Active Substance: BETAMETHASONE VALERATE
     Indication: ECZEMA
     Dosage: PRN
     Route: 061
     Dates: start: 2018
  3. OMNARIS [Concomitant]
     Active Substance: CICLESONIDE
     Indication: RHINITIS
     Dosage: 2 SPRAYS PER NOSTRIL (200 MCG) QD
     Route: 045
     Dates: start: 2018
  4. TOLVAPTAN [Suspect]
     Active Substance: TOLVAPTAN
     Indication: CONGENITAL CYSTIC KIDNEY DISEASE
     Dosage: 60 MG, QD (IN MORNING)
     Route: 048
     Dates: start: 20111229
  5. VITAMIN C [Concomitant]
     Active Substance: ASCORBIC ACID
     Indication: SUPPLEMENTATION THERAPY
     Dosage: UNK
     Route: 048
     Dates: start: 2018
  6. PANTOLOC [Concomitant]
     Active Substance: PANTOPRAZOLE SODIUM
     Indication: GASTRIC PH DECREASED
     Dosage: UNK
     Route: 048
     Dates: start: 2016, end: 201901
  7. FERROUS GLUCONATE [Concomitant]
     Active Substance: FERROUS GLUCONATE
     Indication: IRON DEFICIENCY ANAEMIA
     Dosage: 300 MG, QD
     Route: 048
     Dates: start: 2018
  8. TANTUM [Concomitant]
     Active Substance: BENZYDAMINE HYDROCHLORIDE
     Indication: MUCOSAL INFLAMMATION
     Dosage: 0.15 %, TID
     Route: 048
     Dates: start: 2018
  9. VITAMIN D [Concomitant]
     Active Substance: CHOLECALCIFEROL
     Indication: CHRONIC KIDNEY DISEASE
     Dosage: 1000 IU, BID
     Route: 048
     Dates: start: 2015
  10. TOLVAPTAN [Suspect]
     Active Substance: TOLVAPTAN
     Dosage: 30 MG, QD (IN EVENING)
     Route: 048
     Dates: start: 20111229
  11. NORVASC [Concomitant]
     Active Substance: AMLODIPINE BESYLATE
     Indication: HYPERTENSION
     Dosage: 5 MG, QD
     Route: 048
     Dates: start: 20180912, end: 201901
  12. IRBESARTAN. [Concomitant]
     Active Substance: IRBESARTAN
     Indication: HYPERTENSION
     Dosage: 300 MG, QD
     Route: 048
     Dates: start: 20180912, end: 201901
  13. BETAMETHASONE VALERATE. [Concomitant]
     Active Substance: BETAMETHASONE VALERATE
     Indication: RASH

REACTIONS (9)
  - General physical health deterioration [Not Recovered/Not Resolved]
  - Poor quality sleep [Unknown]
  - Stoma site discomfort [Unknown]
  - Oral discomfort [Unknown]
  - Dysuria [Recovered/Resolved]
  - Hypomagnesaemia [Unknown]
  - Major depression [Unknown]
  - Anxiety [Unknown]
  - Colorectal cancer [Not Recovered/Not Resolved]

NARRATIVE: CASE EVENT DATE: 2018
